FAERS Safety Report 5020137-6 (Version None)
Quarter: 2006Q2

REPORT INFORMATION
  Report Type: 
  Country: None (occurrence: None)
  Receive Date: 20060602
  Receipt Date: 20060525
  Transmission Date: 20061013
  Serious: Yes (Death, Life-Threatening, Hospitalization)
  Sender: FDA-Public Use
  Company Number: E2020-00092-SPO-IE

PATIENT
  Age: 77 Year
  Sex: Male

DRUGS (6)
  1. ARICEPT [Suspect]
     Indication: DEMENTIA
     Dosage: 5 MG, 1 IN 1 D, ORAL
     Route: 048
     Dates: start: 20050728, end: 20050826
  2. TAMSULOSIN HCL [Concomitant]
  3. SIMVASTATIN [Concomitant]
  4. GLARGINE (INSULIN) [Concomitant]
  5. GLICLAZIDE [Concomitant]
  6. WARFARIN SODIUM [Concomitant]

REACTIONS (5)
  - ATRIOVENTRICULAR BLOCK [None]
  - BRONCHOPNEUMONIA [None]
  - CEREBROVASCULAR ACCIDENT [None]
  - FALL [None]
  - SUPRAVENTRICULAR TACHYCARDIA [None]
